FAERS Safety Report 7241555-1 (Version None)
Quarter: 2011Q1

REPORT INFORMATION
  Report Type: 
  Country: None (occurrence: None)
  Receive Date: 20110124
  Receipt Date: 20110113
  Transmission Date: 20110831
  Serious: Yes (Hospitalization)
  Sender: FDA-Public Use
  Company Number: NL-MEDIMMUNE-MEDI-0012281

PATIENT
  Sex: Female
  Weight: 7.15 kg

DRUGS (2)
  1. SYNAGIS [Suspect]
     Route: 030
     Dates: start: 20090101, end: 20100101
  2. SYNAGIS [Suspect]
     Route: 030
     Dates: start: 20101021, end: 20110113

REACTIONS (5)
  - H1N1 INFLUENZA [None]
  - RESPIRATORY TRACT INFECTION [None]
  - PNEUMONIA VIRAL [None]
  - PNEUMONIA [None]
  - GASTROOESOPHAGEAL REFLUX DISEASE [None]
